FAERS Safety Report 4932883-0 (Version None)
Quarter: 2006Q1

REPORT INFORMATION
  Report Type: 
  Country: None (occurrence: None)
  Receive Date: 20060306
  Receipt Date: 20060224
  Transmission Date: 20060701
  Serious: Yes (Hospitalization)
  Sender: FDA-Public Use
  Company Number: US-JNJFOC-20060300230

PATIENT
  Sex: Female
  Weight: 51.71 kg

DRUGS (4)
  1. DURAGESIC-100 [Suspect]
     Route: 062
  2. SYNTHROID [Concomitant]
     Indication: THYROID DISORDER
     Route: 048
  3. ARTHROTEC [Concomitant]
     Route: 048
  4. ARTHROTEC [Concomitant]
     Indication: ARTHRITIS
     Route: 048

REACTIONS (2)
  - NECK PAIN [None]
  - NEURALGIA [None]
